FAERS Safety Report 7474929-4 (Version None)
Quarter: 2011Q2

REPORT INFORMATION
  Report Type: 
  Country: None (occurrence: None)
  Receive Date: 20110512
  Receipt Date: 20091113
  Transmission Date: 20111010
  Serious: Yes (Other)
  Sender: FDA-Public Use
  Company Number: US-BAYER-200939209NA

PATIENT
  Age: 67 Year
  Sex: Male
  Weight: 106 kg

DRUGS (16)
  1. TRASYLOL [Suspect]
     Indication: CORONARY ARTERY BYPASS
     Dosage: 100 ML, LOADING DOSE
     Dates: start: 20011102, end: 20011102
  2. TRASYLOL [Suspect]
     Dosage: 25 ML/HOUR INFUSION
     Route: 041
     Dates: start: 20011102, end: 20011102
  3. LISINOPRIL [Concomitant]
  4. NITROGLYCERIN [Concomitant]
     Dosage: 0.5MCG/KG/MIN
     Route: 042
     Dates: start: 20041102, end: 20041102
  5. HUMAN RED BLOOD CELLS [Concomitant]
     Dosage: 3 U, UNK
     Route: 042
     Dates: start: 20041102
  6. PLATELETS [Concomitant]
     Dosage: 6 U, UNK
     Route: 042
     Dates: start: 20041102
  7. NORVASC [Concomitant]
  8. CARDURA [Concomitant]
  9. GLUCOPHAGE [Concomitant]
  10. CRYOPRECIPITATES [Concomitant]
     Dosage: 9 U, UNK
     Route: 042
     Dates: start: 20041102
  11. TOPROL-XL [Concomitant]
  12. HEPARIN [Concomitant]
  13. PROTAMINE SULFATE [Concomitant]
     Dosage: 550 MG, UNK
     Route: 042
     Dates: start: 20041102, end: 20041102
  14. FRESH FROZEN PLASMA [Concomitant]
     Dosage: 2 U, UNK
     Route: 042
     Dates: start: 20041102
  15. NIASPAN [Concomitant]
  16. ACETYLSALICYLIC ACID SRT [Concomitant]

REACTIONS (9)
  - STRESS [None]
  - INJURY [None]
  - RENAL FAILURE [None]
  - EMOTIONAL DISTRESS [None]
  - PAIN [None]
  - UNEVALUABLE EVENT [None]
  - FEAR [None]
  - RENAL INJURY [None]
  - ANXIETY [None]
